FAERS Safety Report 12345430 (Version 1)
Quarter: 2016Q2

REPORT INFORMATION
  Report Type: Spontaneous
  Country: TR (occurrence: TR)
  Receive Date: 20160508
  Receipt Date: 20160508
  Transmission Date: 20160815
  Serious: Yes (Hospitalization)
  Sender: FDA-Public Use
  Company Number: TR-HOSPIRA-3271439

PATIENT
  Age: 3 Month
  Weight: 7 kg

DRUGS (1)
  1. VANCOMYCIN HYDROCHLORIDE. [Suspect]
     Active Substance: VANCOMYCIN HYDROCHLORIDE
     Indication: STAPHYLOCOCCAL INFECTION
     Dosage: 40 MG/KG/DAY

REACTIONS (3)
  - Necrosis [Recovering/Resolving]
  - Haemangioma congenital [Recovering/Resolving]
  - Red man syndrome [Recovered/Resolved]
